FAERS Safety Report 8791379 (Version 1)
Quarter: 2012Q4

REPORT INFORMATION
  Report Type: Spontaneous
  Country: US (occurrence: None)
  Receive Date: 20120914
  Receipt Date: 20120914
  Transmission Date: 20130627
  Serious: No
  Sender: FDA-Public Use
  Company Number: None

PATIENT
  Age: 67 Year
  Sex: Female
  Weight: 95.26 kg

DRUGS (2)
  1. OXYCODONE HCL [Suspect]
     Indication: PAIN
     Dosage: 5 MG 1 or 2 / 3 hrs
     Dates: start: 20120823, end: 20120901
  2. METHOCARBAMOL [Suspect]
     Indication: MUSCLE RELAXANT
     Dosage: 500 mg 1/6 Hrs
     Dates: start: 20120823, end: 20120901

REACTIONS (2)
  - Hypertonic bladder [None]
  - Pollakiuria [None]
